FAERS Safety Report 19387456 (Version 1)
Quarter: 2021Q2

REPORT INFORMATION
  Report Type: Spontaneous
  Country: CA (occurrence: CA)
  Receive Date: 20210608
  Receipt Date: 20210608
  Transmission Date: 20210717
  Serious: Yes (Hospitalization)
  Sender: FDA-Public Use
  Company Number: CA-ROCHE-2841389

PATIENT
  Age: 45 Year
  Sex: Female
  Weight: 36 kg

DRUGS (17)
  1. ATORVASTATIN [Concomitant]
     Active Substance: ATORVASTATIN
  2. CHOLECALCIFEROL [Concomitant]
     Active Substance: CHOLECALCIFEROL
  3. MAGNESIUM GLUCONATE [Concomitant]
     Active Substance: MAGNESIUM GLUCONATE
  4. RIVAROXABAN [Concomitant]
     Active Substance: RIVAROXABAN
     Route: 065
  5. PREDNISONE. [Concomitant]
     Active Substance: PREDNISONE
  6. TACROLIMUS. [Concomitant]
     Active Substance: TACROLIMUS
  7. MOMETASONE FUROATE. [Concomitant]
     Active Substance: MOMETASONE FUROATE
  8. RIZATRIPTAN. [Concomitant]
     Active Substance: RIZATRIPTAN
  9. METOPROLOL. [Concomitant]
     Active Substance: METOPROLOL
     Route: 065
  10. MYCOPHENOLATE MOFETIL. [Concomitant]
     Active Substance: MYCOPHENOLATE MOFETIL
     Route: 048
  11. TAMIFLU [Suspect]
     Active Substance: OSELTAMIVIR PHOSPHATE
     Indication: INFLUENZA
     Route: 048
  12. ACETAMINOPHEN. [Concomitant]
     Active Substance: ACETAMINOPHEN
  13. OXAZEPAM. [Concomitant]
     Active Substance: OXAZEPAM
  14. DIVALPROEX SODIUM. [Concomitant]
     Active Substance: DIVALPROEX SODIUM
  15. DOXYTAB [DOXYCYCLINE] [Suspect]
     Active Substance: DOXYCYCLINE
     Indication: RESPIRATORY TRACT INFECTION
     Route: 048
  16. JANUVIA [Concomitant]
     Active Substance: SITAGLIPTIN PHOSPHATE
     Route: 048
  17. METFORMIN [Concomitant]
     Active Substance: METFORMIN HYDROCHLORIDE

REACTIONS (2)
  - Condition aggravated [Recovered/Resolved]
  - Diarrhoea [Recovered/Resolved]
